FAERS Safety Report 23265079 (Version 1)
Quarter: 2023Q4

REPORT INFORMATION
  Report Type: Spontaneous
  Country: US (occurrence: US)
  Receive Date: 20231206
  Receipt Date: 20231206
  Transmission Date: 20240110
  Serious: No
  Sender: FDA-Public Use
  Company Number: US-BIOGEN-2023BI01229257

PATIENT
  Sex: Female

DRUGS (1)
  1. TECFIDERA [Suspect]
     Active Substance: DIMETHYL FUMARATE
     Indication: Multiple sclerosis
     Route: 050
     Dates: start: 20130418, end: 20130628

REACTIONS (5)
  - Hypersensitivity [Unknown]
  - Road traffic accident [Unknown]
  - Spinal column injury [Unknown]
  - Multiple sclerosis relapse [Unknown]
  - Concussion [Unknown]
